FAERS Safety Report 7742162-4 (Version None)
Quarter: 2011Q3

REPORT INFORMATION
  Report Type: 
  Country: None (occurrence: None)
  Receive Date: 20110912
  Receipt Date: 20110908
  Transmission Date: 20111222
  Serious: Yes (Death, Other)
  Sender: FDA-Public Use
  Company Number: PHEH2007US08015

PATIENT
  Sex: Female
  Weight: 117.1 kg

DRUGS (37)
  1. ZOMETA [Suspect]
     Indication: BREAST CANCER
     Dates: start: 20040101, end: 20060101
  2. VICODIN [Concomitant]
  3. BIAXIN [Concomitant]
  4. TRIAMCINOLONE [Concomitant]
  5. METHOTREXATE [Concomitant]
     Dosage: 70 MG, UNK
     Route: 042
  6. INDERAL [Concomitant]
  7. AREDIA [Suspect]
     Indication: BREAST CANCER
     Dosage: 90 MG, OVER 2 HRS.
     Route: 042
     Dates: start: 20000101, end: 20040101
  8. MINOCYCLINE HCL [Concomitant]
  9. ALPRAZOLAM [Concomitant]
  10. PEN-VEE K [Concomitant]
     Dosage: 500 MG, QID
  11. OXYCONTIN [Concomitant]
  12. CLINDAMYCIN [Concomitant]
  13. XANAX [Concomitant]
  14. CELEBREX [Concomitant]
  15. PAXIL [Concomitant]
  16. IMIPRAMINE [Concomitant]
  17. LEVAQUIN [Concomitant]
  18. BEXTRA [Concomitant]
  19. DAYPRO [Concomitant]
  20. AREDIA [Suspect]
     Indication: BONE PAIN
  21. FEMARA [Concomitant]
     Dosage: 2.5 MG, QD
  22. PROPRANOLOL [Concomitant]
  23. DYAZIDE [Concomitant]
  24. SYNVISC [Concomitant]
  25. LODINE [Concomitant]
  26. PREDNISONE [Concomitant]
  27. ZITHROMAX [Concomitant]
  28. FLUOROURACIL [Concomitant]
     Dosage: 1000 MG, UNK
     Route: 042
  29. AMITRIPTYLINE HCL [Concomitant]
     Dosage: 50 MG, UNK
  30. RANITIDINE [Concomitant]
  31. TAMOXIFEN CITRATE [Concomitant]
  32. DESONIDE [Concomitant]
  33. CALCIUM CARBONATE [Concomitant]
  34. CHEMOTHERAPEUTICS NOS [Concomitant]
  35. FASLODEX [Concomitant]
  36. GLUCOSAMINE [Concomitant]
  37. PERIDEX [Concomitant]

REACTIONS (71)
  - HYPOPHAGIA [None]
  - RENAL IMPAIRMENT [None]
  - INTESTINAL OBSTRUCTION [None]
  - ESSENTIAL HYPERTENSION [None]
  - SEBORRHOEIC KERATOSIS [None]
  - DRY EYE [None]
  - ONYCHOMYCOSIS [None]
  - LUNG INFILTRATION [None]
  - RIB FRACTURE [None]
  - COMPRESSION FRACTURE [None]
  - APNOEA [None]
  - DEFORMITY [None]
  - GALLBLADDER DISORDER [None]
  - PANIC DISORDER [None]
  - FATIGUE [None]
  - FOOT DEFORMITY [None]
  - PAIN IN EXTREMITY [None]
  - FALL [None]
  - TOOTH DISORDER [None]
  - SKIN LESION [None]
  - DEPRESSION [None]
  - GINGIVAL PAIN [None]
  - OSTEOARTHRITIS [None]
  - FIBROMYALGIA [None]
  - CORNEAL DYSTROPHY [None]
  - VOMITING [None]
  - OSTEOPOROSIS [None]
  - LUMBAR SPINAL STENOSIS [None]
  - ORAL PAIN [None]
  - VEIN DISORDER [None]
  - SYSTEMIC LUPUS ERYTHEMATOSUS [None]
  - GINGIVAL SWELLING [None]
  - STOMATITIS [None]
  - PALPITATIONS [None]
  - VISUAL ACUITY REDUCED [None]
  - PERIPHERAL VASCULAR DISORDER [None]
  - PAIN [None]
  - ABSCESS JAW [None]
  - BASAL CELL CARCINOMA [None]
  - POLYMYALGIA RHEUMATICA [None]
  - CATARACT [None]
  - CELLULITIS [None]
  - ROSACEA [None]
  - DIARRHOEA [None]
  - TOOTH LOSS [None]
  - ANXIETY [None]
  - EMOTIONAL DISTRESS [None]
  - TONSILLAR DISORDER [None]
  - COLON CANCER [None]
  - ANAEMIA [None]
  - OEDEMA PERIPHERAL [None]
  - FEMUR FRACTURE [None]
  - HYPERKERATOSIS [None]
  - CONSTIPATION [None]
  - BONE DISORDER [None]
  - OSTEOMYELITIS [None]
  - LIMB INJURY [None]
  - HAEMORRHOIDS [None]
  - MACULAR DEGENERATION [None]
  - NAUSEA [None]
  - GAIT DISTURBANCE [None]
  - INTERVERTEBRAL DISC PROTRUSION [None]
  - NEUROPATHY PERIPHERAL [None]
  - DEATH [None]
  - OSTEONECROSIS OF JAW [None]
  - OBESITY [None]
  - ARTHRITIS [None]
  - DYSGEUSIA [None]
  - URINARY INCONTINENCE [None]
  - ASTHENIA [None]
  - ABDOMINAL PAIN [None]
